FAERS Safety Report 8382154-8 (Version None)
Quarter: 2012Q2

REPORT INFORMATION
  Report Type: 
  Country: None (occurrence: None)
  Receive Date: 20120524
  Receipt Date: 20120521
  Transmission Date: 20120825
  Serious: Yes (Other)
  Sender: FDA-Public Use
  Company Number: GB-PFIZER INC-2012123226

PATIENT
  Sex: Male

DRUGS (1)
  1. GABAPENTIN [Suspect]
     Indication: PAIN
     Dosage: 900 MG DAILY
     Route: 048

REACTIONS (4)
  - SUICIDAL IDEATION [None]
  - PNEUMONIA [None]
  - DRUG WITHDRAWAL SYNDROME [None]
  - AGITATION [None]
